FAERS Safety Report 4669285-0 (Version None)
Quarter: 2005Q2

REPORT INFORMATION
  Report Type: 
  Country: None (occurrence: None)
  Receive Date: 20050519
  Receipt Date: 20050513
  Transmission Date: 20051028
  Serious: Yes (Hospitalization, Other)
  Sender: FDA-Public Use
  Company Number: 2004031075

PATIENT
  Age: 62 Year
  Sex: Male

DRUGS (7)
  1. LIPITOR [Suspect]
     Indication: HYPERCHOLESTEROLAEMIA
     Dosage: 20 MG (1 IN 1 D), ORAL
     Route: 048
     Dates: start: 20030901
  2. TICLOPIDINE HCL [Concomitant]
  3. TAKEPRON (LANSOPRAZOLE) [Concomitant]
  4. ASPIRIN [Concomitant]
  5. MAGNESIUM OXIDE (MOGNESIUM OXIDE) [Concomitant]
  6. NITROPEN (GLYCERYL TRINITRATE) [Concomitant]
  7. SELBEX (TEPRENONE) [Concomitant]

REACTIONS (7)
  - ANGINA PECTORIS [None]
  - CHOLINERGIC SYNDROME [None]
  - CONDITION AGGRAVATED [None]
  - DENTAL CARIES [None]
  - MENIERE'S DISEASE [None]
  - NASOPHARYNGITIS [None]
  - STENT OCCLUSION [None]
